FAERS Safety Report 5982631-0 (Version None)
Quarter: 2008Q4

REPORT INFORMATION
  Report Type: 
  Country: None (occurrence: None)
  Receive Date: 20081208
  Receipt Date: 20081201
  Transmission Date: 20090506
  Serious: Yes (Other)
  Sender: FDA-Public Use
  Company Number: PHBS2008TR06565

PATIENT
  Age: 34 Year
  Sex: Male

DRUGS (3)
  1. CYCLOSPORINE [Suspect]
     Indication: RENAL TRANSPLANT
     Dosage: 10 MG/KG/DAY
     Route: 065
  2. CYCLOSPORINE [Suspect]
     Route: 065
  3. METHYLPREDNISOLONE 16MG TAB [Suspect]
     Indication: RENAL TRANSPLANT
     Dosage: 250 MG
     Route: 042

REACTIONS (2)
  - CHOLELITHIASIS [None]
  - HYPERCHOLESTEROLAEMIA [None]
